FAERS Safety Report 23330950 (Version 1)
Quarter: 2023Q4

REPORT INFORMATION
  Report Type: Spontaneous
  Country: NL (occurrence: None)
  Receive Date: 20231222
  Receipt Date: 20231222
  Transmission Date: 20240110
  Serious: Yes (Life-Threatening, Other)
  Sender: FDA-Public Use
  Company Number: 2023A290804

PATIENT
  Age: 66 Year
  Sex: Male
  Weight: 89 kg

DRUGS (6)
  1. SEROQUEL [Suspect]
     Active Substance: QUETIAPINE FUMARATE
     Indication: Insomnia
     Route: 048
     Dates: start: 20231120
  2. ASPIRIN [Concomitant]
     Active Substance: ASPIRIN
  3. HALOPERIDOL [Concomitant]
     Active Substance: HALOPERIDOL
  4. CLORAZEPIC ACID/TRANXENE MB [Concomitant]
  5. MOVICOLON [Concomitant]
     Active Substance: POLYETHYLENE GLYCOL 3350\POTASSIUM CHLORIDE\SODIUM BICARBONATE\SODIUM CHLORIDE
  6. ESKETAMINE HCL [Concomitant]
     Dosage: DRINK, 10 MG/ML (MILLIGRAMS PER MILLILITRE)

REACTIONS (4)
  - Suicide attempt [Recovering/Resolving]
  - Suicidal ideation [Recovering/Resolving]
  - Depressed mood [Recovering/Resolving]
  - Obsessive-compulsive disorder [Recovering/Resolving]
